FAERS Safety Report 6036386-4 (Version None)
Quarter: 2009Q1

REPORT INFORMATION
  Report Type: 
  Country: None (occurrence: None)
  Receive Date: 20090113
  Receipt Date: 20090108
  Transmission Date: 20090719
  Serious: No
  Sender: FDA-Public Use
  Company Number: US-ALLERGAN-0814323US

PATIENT
  Sex: Female
  Weight: 49.887 kg

DRUGS (2)
  1. COMBIGAN [Suspect]
     Indication: GLAUCOMA
     Dosage: UNK, UNK
     Route: 047
     Dates: start: 20081105, end: 20081106
  2. LUMIGAN [Concomitant]
     Indication: GLAUCOMA
     Dosage: UNK, QHS
     Dates: start: 20020101

REACTIONS (3)
  - DIZZINESS [None]
  - DRY MOUTH [None]
  - DYSARTHRIA [None]
